FAERS Safety Report 9815603 (Version 2)
Quarter: 2014Q1

REPORT INFORMATION
  Report Type: Spontaneous
  Country: JP (occurrence: None)
  Receive Date: 20140110
  Receipt Date: 20140204
  Transmission Date: 20141002
  Serious: Yes (Life-Threatening)
  Sender: FDA-Public Use
  Company Number: SP07352

PATIENT
  Age: 67 Year
  Sex: Female

DRUGS (1)
  1. MOVIPREP [Suspect]
     Indication: BOWEL PREPARATION
     Dosage: 1 LIT, ORAL
     Route: 048
     Dates: start: 20131216, end: 20131216

REACTIONS (3)
  - Loss of consciousness [None]
  - Faecal incontinence [None]
  - Urinary incontinence [None]
